FAERS Safety Report 5084330-9 (Version None)
Quarter: 2006Q3

REPORT INFORMATION
  Report Type: 
  Country: None (occurrence: None)
  Receive Date: 20060816
  Receipt Date: 20060810
  Transmission Date: 20061208
  Serious: Yes (Death)
  Sender: FDA-Public Use
  Company Number: 163-20785-06080389

PATIENT
  Age: 63 Year
  Sex: Male

DRUGS (8)
  1. THALOMID [Suspect]
     Indication: MULTIPLE MYELOMA
     Dosage: ORAL
     Route: 048
  2. MELPHALAN (MELPHALAN) [Suspect]
     Indication: MULTIPLE MYELOMA
     Dosage: 350 MG INTRAVENOUS
     Route: 042
     Dates: start: 20060411, end: 20060421
  3. DEXAMETHASONE TAB [Suspect]
     Indication: MULTIPLE MYELOMA
     Dosage: 40 MG, 1 IN 1 2D, ORAL
     Route: 048
     Dates: start: 20060410, end: 20060413
  4. ZANTAC [Concomitant]
  5. CLARINEX [Concomitant]
  6. NASACORT [Concomitant]
  7. ACYCLOVIR [Concomitant]
  8. LUNESTA [Concomitant]

REACTIONS (3)
  - ARRHYTHMIA [None]
  - ELECTROMECHANICAL DISSOCIATION [None]
  - SUDDEN DEATH [None]
